FAERS Safety Report 4618805-0 (Version None)
Quarter: 2005Q1

REPORT INFORMATION
  Report Type: 
  Country: None (occurrence: None)
  Receive Date: 20050323
  Receipt Date: 20050311
  Transmission Date: 20050727
  Serious: No
  Sender: FDA-Public Use
  Company Number: K200500360

PATIENT
  Age: 3 Year
  Sex: Female
  Weight: 12.7 kg

DRUGS (2)
  1. BICILLIN L-A [Suspect]
     Indication: TONSILLITIS
     Dosage: 600,000 U, SINGLE, INTRAMUSCULAR
     Route: 030
     Dates: start: 20050311, end: 20050311
  2. TYLENOL [Concomitant]

REACTIONS (2)
  - MEDICAL DEVICE COMPLICATION [None]
  - MEDICATION ERROR [None]
